FAERS Safety Report 21813756 (Version 1)
Quarter: 2023Q1

REPORT INFORMATION
  Report Type: Spontaneous
  Country: JP (occurrence: JP)
  Receive Date: 20230104
  Receipt Date: 20230104
  Transmission Date: 20230417
  Serious: Yes (Hospitalization, Other)
  Sender: FDA-Public Use
  Company Number: JP-SUN PHARMACEUTICAL INDUSTRIES LTD-2022R1-332067

PATIENT
  Age: 38 Year
  Sex: Female
  Weight: 55.1 kg

DRUGS (8)
  1. TEGRETOL [Suspect]
     Active Substance: CARBAMAZEPINE
     Indication: Trigeminal neuralgia
     Dosage: 100 MILLIGRAM, BID
     Route: 048
     Dates: start: 20220222, end: 20220309
  2. SULFAMETHOXAZOLE\TRIMETHOPRIM [Suspect]
     Active Substance: SULFAMETHOXAZOLE\TRIMETHOPRIM
     Indication: Infection prophylaxis
     Dosage: UNK
     Route: 048
  3. ACETAMINOPHEN [Suspect]
     Active Substance: ACETAMINOPHEN
     Indication: Pyrexia
     Dosage: 1 PACKET PER DAY
     Route: 048
     Dates: start: 20220304, end: 20220304
  4. THYRADIN-S TABLETS 12.5microgram [Concomitant]
     Indication: Product used for unknown indication
     Dosage: UNK
     Route: 048
  5. THYRADIN-S TABLETS 75microgram [Concomitant]
     Indication: Product used for unknown indication
     Dosage: UNK
     Route: 048
  6. LOXOPROFEN TABLETS 60mg ^EMEC^ [Concomitant]
     Indication: Product used for unknown indication
     Dosage: UNK
     Route: 048
  7. DICLOFENAC SODIUM SUPPOSITORY 50mg ^NICHIIKO^ [Concomitant]
     Indication: Product used for unknown indication
     Dosage: UNK
     Route: 054
  8. PREDNISOLONE [Concomitant]
     Active Substance: PREDNISOLONE
     Indication: Drug reaction with eosinophilia and systemic symptoms
     Dosage: 1 MILLIGRAM/KILOGRAM, DAILY
     Route: 048

REACTIONS (2)
  - Drug reaction with eosinophilia and systemic symptoms [Recovering/Resolving]
  - Drug hypersensitivity [Recovering/Resolving]

NARRATIVE: CASE EVENT DATE: 20220304
